FAERS Safety Report 8473861-7 (Version None)
Quarter: 2012Q2

REPORT INFORMATION
  Report Type: 
  Country: None (occurrence: None)
  Receive Date: 20120628
  Receipt Date: 20120206
  Transmission Date: 20120825
  Serious: Yes (Other)
  Sender: FDA-Public Use
  Company Number: US-MYLANLABS-2012S1000101

PATIENT
  Age: 57 Year
  Sex: Female

DRUGS (8)
  1. DEPAKOTE [Concomitant]
  2. CLOZAPINE [Suspect]
     Indication: SCHIZOPHRENIA
     Dosage: 100MG QAM AND 200MG AT BEDTIME
     Route: 048
     Dates: end: 20120120
  3. ACETAMINOPHEN [Concomitant]
  4. ATIVAN [Concomitant]
  5. COGENTIN [Concomitant]
  6. ZOCOR [Concomitant]
  7. RISPERDAL [Concomitant]
  8. ASPIRIN [Concomitant]

REACTIONS (1)
  - GRANULOCYTOPENIA [None]
